FAERS Safety Report 6807600-X (Version None)
Quarter: 2010Q2

REPORT INFORMATION
  Report Type: 
  Country: None (occurrence: None)
  Receive Date: 20100629
  Receipt Date: 20081110
  Transmission Date: 20101027
  Serious: No
  Sender: FDA-Public Use
  Company Number: US-PFIZER INC-2008095371

PATIENT

DRUGS (3)
  1. ZYVOX [Suspect]
     Indication: STAPHYLOCOCCAL INFECTION
  2. ZYVOX [Suspect]
     Indication: ENTEROCOCCAL INFECTION
  3. ZYVOX [Suspect]
     Indication: LOCALISED INFECTION

REACTIONS (1)
  - DRUG INEFFECTIVE [None]
